FAERS Safety Report 18137235 (Version 1)
Quarter: 2020Q3

REPORT INFORMATION
  Report Type: Other
  Country: CA (occurrence: CA)
  Receive Date: 20200812
  Receipt Date: 20200812
  Transmission Date: 20201103
  Serious: Yes (Death, Other)
  Sender: FDA-Public Use
  Company Number: CA-APOTEX-2020AP015306

PATIENT
  Age: 65 Year
  Sex: Female

DRUGS (2)
  1. MYCOPHENOLATE MOFETIL. [Suspect]
     Active Substance: MYCOPHENOLATE MOFETIL
     Indication: STEM CELL TRANSPLANT
     Dosage: UNK
     Route: 065
  2. MYCOPHENOLATE MOFETIL. [Suspect]
     Active Substance: MYCOPHENOLATE MOFETIL
     Indication: IMMUNOSUPPRESSANT DRUG THERAPY

REACTIONS (7)
  - Disease progression [Fatal]
  - Graft versus host disease in eye [Fatal]
  - Mycobacterium avium complex infection [Fatal]
  - Graft versus host disease in liver [Fatal]
  - Graft versus host disease in lung [Fatal]
  - Cytomegalovirus infection [Fatal]
  - Product use in unapproved indication [Fatal]
